FAERS Safety Report 16160752 (Version 2)
Quarter: 2019Q2

REPORT INFORMATION
  Report Type: Spontaneous
  Country: JP (occurrence: JP)
  Receive Date: 20190405
  Receipt Date: 20190624
  Transmission Date: 20190711
  Serious: Yes (Life-Threatening, Hospitalization, Other)
  Sender: FDA-Public Use
  Company Number: JP-SA-2019SA092014

PATIENT
  Age: 74 Year
  Sex: Female
  Weight: 31.5 kg

DRUGS (14)
  1. PREDONINE [PREDNISOLONE ACETATE] [Concomitant]
     Active Substance: PREDNISOLONE ACETATE
     Indication: RHEUMATOID ARTHRITIS
     Dosage: 10 UNK, QD; THE DOSE WAS DECREASED AFTER THE EVENT ONSET
     Route: 048
     Dates: start: 20181130
  2. RESTAMIN #1 [Concomitant]
     Dosage: 50 MG
     Route: 048
     Dates: start: 20190222, end: 20190222
  3. PREDONINE [PREDNISOLONE ACETATE] [Concomitant]
     Active Substance: PREDNISOLONE ACETATE
     Dosage: 3 MG
     Route: 048
     Dates: start: 20190222, end: 20190222
  4. SOLU-CORTEF [Concomitant]
     Active Substance: HYDROCORTISONE SODIUM SUCCINATE
     Dosage: 50 MG
     Route: 065
     Dates: start: 20190222, end: 20190222
  5. RESTAMIN #1 [Concomitant]
     Dosage: 50 MG
     Route: 048
     Dates: start: 20190208, end: 20190208
  6. KEVZARA [Suspect]
     Active Substance: SARILUMAB
     Indication: RHEUMATOID ARTHRITIS
     Dosage: 200 MG, QOW
     Route: 058
     Dates: start: 20190125, end: 20190222
  7. LYRICA [Concomitant]
     Active Substance: PREGABALIN
     Indication: RHEUMATOID ARTHRITIS
     Dosage: 50 UNK, BID
     Route: 048
     Dates: start: 20160225
  8. ALLEGRA [Concomitant]
     Active Substance: FEXOFENADINE HYDROCHLORIDE
     Indication: RASH
     Dosage: 60 UNK, BID
     Route: 048
     Dates: start: 20181102
  9. SOLU-CORTEF [Concomitant]
     Active Substance: HYDROCORTISONE SODIUM SUCCINATE
     Indication: RHEUMATOID ARTHRITIS
     Dosage: 100 MG
     Route: 065
     Dates: start: 20190125, end: 20190125
  10. RESTAMIN #1 [Concomitant]
     Indication: PRODUCT USED FOR UNKNOWN INDICATION
     Dosage: 50 MG
     Route: 048
     Dates: start: 20190125, end: 20190125
  11. PREDONINE [PREDNISOLONE ACETATE] [Concomitant]
     Active Substance: PREDNISOLONE ACETATE
     Dosage: 5 MG
     Route: 048
     Dates: start: 20190208, end: 20190208
  12. TAKEPRON [Concomitant]
     Active Substance: LANSOPRAZOLE
     Indication: PROPHYLAXIS AGAINST GASTROINTESTINAL ULCER
     Dosage: 15 UNK, QD
     Route: 048
  13. CELECOX HEXAL [Concomitant]
     Indication: RHEUMATOID ARTHRITIS
     Dosage: 100 UNK, BID
     Route: 048
     Dates: start: 20151203
  14. SOLU-CORTEF [Concomitant]
     Active Substance: HYDROCORTISONE SODIUM SUCCINATE
     Dosage: 100 MG
     Route: 065
     Dates: start: 20190208, end: 20190208

REACTIONS (2)
  - Interstitial lung disease [Recovering/Resolving]
  - Dyspnoea [Recovering/Resolving]

NARRATIVE: CASE EVENT DATE: 20190301
